FAERS Safety Report 6983885-4 (Version None)
Quarter: 2010Q3

REPORT INFORMATION
  Report Type: 
  Country: None (occurrence: None)
  Receive Date: 20100914
  Receipt Date: 20090420
  Transmission Date: 20110219
  Serious: No
  Sender: FDA-Public Use
  Company Number: US-WYE-H09045709

PATIENT
  Age: 34 Year
  Sex: Female

DRUGS (1)
  1. ADVIL EXTRA STRENGTH [Suspect]
     Indication: HEADACHE
     Dosage: 1 CAPSULE EVERY 1 PRN
     Route: 048
     Dates: start: 20090418, end: 20090419

REACTIONS (1)
  - DYSPHAGIA [None]
